FAERS Safety Report 7535940-8 (Version None)
Quarter: 2011Q2

REPORT INFORMATION
  Report Type: 
  Country: None (occurrence: None)
  Receive Date: 20110609
  Receipt Date: 20110530
  Transmission Date: 20111010
  Serious: Yes (Hospitalization)
  Sender: FDA-Public Use
  Company Number: FR-SANOFI-AVENTIS-2011SA035280

PATIENT
  Age: 84 Year
  Sex: Female

DRUGS (14)
  1. ATORVASTATIN [Concomitant]
     Route: 048
     Dates: end: 20110202
  2. JANUVIA [Concomitant]
     Route: 048
     Dates: end: 20110127
  3. FUROSEMIDE [Concomitant]
     Route: 048
     Dates: end: 20110202
  4. PERINDOPRIL ERBUMINE [Concomitant]
     Route: 048
  5. LOVENOX [Suspect]
     Route: 003
     Dates: start: 20110111, end: 20110117
  6. LEVOTHYROXINE SODIUM [Concomitant]
     Route: 048
  7. BISOPROLOL FUMARATE [Concomitant]
     Route: 048
  8. PREVISCAN [Interacting]
     Route: 048
  9. RABEPRAZOLE SODIUM [Concomitant]
     Route: 048
  10. REPAGLINIDE [Concomitant]
     Route: 048
     Dates: end: 20110127
  11. AMIODARONE HCL [Concomitant]
     Route: 048
  12. ZOLPIDEM [Concomitant]
     Route: 048
  13. SOLU-MEDROL [Interacting]
     Route: 051
     Dates: start: 20110111, end: 20110117
  14. METFORMIN HYDROCHLORIDE [Concomitant]
     Route: 048

REACTIONS (4)
  - ABDOMINAL WALL HAEMATOMA [None]
  - DRUG INTERACTION [None]
  - INTERNATIONAL NORMALISED RATIO INCREASED [None]
  - ANAEMIA [None]
